FAERS Safety Report 7718220-7 (Version None)
Quarter: 2011Q3

REPORT INFORMATION
  Report Type: 
  Country: None (occurrence: None)
  Receive Date: 20110830
  Receipt Date: 20110822
  Transmission Date: 20111222
  Serious: Yes (Other)
  Sender: FDA-Public Use
  Company Number: PHFR2011GB02103

PATIENT
  Sex: Female

DRUGS (9)
  1. DIAZEPAM [Concomitant]
     Dosage: 2 MG/DAY
     Route: 048
  2. ASPIRIN [Concomitant]
     Dosage: 75 MG/DAY
     Route: 048
  3. SERTRALINE HYDROCHLORIDE [Concomitant]
     Dosage: 150 MG/DAY
     Route: 048
  4. SIMAVASTATIN [Concomitant]
     Dosage: 40 MG/DAY
     Route: 048
  5. NORETHINDRONE [Concomitant]
     Dosage: 10 MG/DAY
     Route: 048
  6. CLOZAPINE [Suspect]
     Dosage: 75 MG, BID
  7. HYOSCINE HYDROBROMIDE [Concomitant]
     Dosage: 600 UG/DAY
     Route: 048
  8. CLOZAPINE [Suspect]
     Dosage: 225 MG AM, 300 MG PM
     Dates: start: 20110319
  9. CLOZAPINE [Suspect]
     Indication: SCHIZOPHRENIA
     Dosage: 150 MG, UNK
     Route: 048
     Dates: start: 20090312

REACTIONS (7)
  - RASH MACULO-PAPULAR [None]
  - RASH ERYTHEMATOUS [None]
  - INCORRECT DOSE ADMINISTERED [None]
  - DRUG DISPENSING ERROR [None]
  - SWELLING FACE [None]
  - STOMATITIS [None]
  - OVERDOSE [None]
